FAERS Safety Report 9769638 (Version 1)
Quarter: 2013Q4

REPORT INFORMATION
  Report Type: Spontaneous
  Country: US (occurrence: US)
  Receive Date: 20131218
  Receipt Date: 20131218
  Transmission Date: 20140711
  Serious: Yes (Death, Congenital Anomaly, Other)
  Sender: FDA-Public Use
  Company Number: US-ABBVIE-13P-163-1180750-00

PATIENT
  Sex: 0

DRUGS (1)
  1. DEPAKOTE [Suspect]
     Indication: MATERNAL EXPOSURE TIMING UNSPECIFIED
     Route: 064

REACTIONS (25)
  - Physical disability [Fatal]
  - Injury [Fatal]
  - Activities of daily living impaired [Fatal]
  - Life expectancy shortened [Fatal]
  - Anhedonia [Fatal]
  - Spina bifida [Fatal]
  - Congenital cardiovascular anomaly [Fatal]
  - Neural tube defect [Fatal]
  - Congenital anomaly [Fatal]
  - Congenital anomaly [Fatal]
  - Deformity [Fatal]
  - Pain [Fatal]
  - Foetal exposure during pregnancy [Fatal]
  - Unevaluable event [Fatal]
  - Pain [Fatal]
  - Economic problem [Fatal]
  - Loss of employment [Fatal]
  - Injury [Fatal]
  - Pain [Fatal]
  - Anxiety [Fatal]
  - Tension [Fatal]
  - Social problem [Fatal]
  - Social problem [Fatal]
  - Social problem [Fatal]
  - Loss of employment [Fatal]
